FAERS Safety Report 20106850 (Version 2)
Quarter: 2022Q1

REPORT INFORMATION
  Report Type: Report from Study
  Country: AU (occurrence: AU)
  Receive Date: 20211124
  Receipt Date: 20220131
  Transmission Date: 20220423
  Serious: Yes (Hospitalization, Other)
  Sender: FDA-Public Use
  Company Number: AU-NOVARTISPH-NVSC2021AU180662

PATIENT
  Age: 39 Year
  Sex: Female

DRUGS (1)
  1. KESIMPTA [Suspect]
     Active Substance: OFATUMUMAB
     Indication: Relapsing-remitting multiple sclerosis
     Dosage: 20 MG, QMO
     Route: 058
     Dates: start: 20210804

REACTIONS (9)
  - Multiple sclerosis relapse [Unknown]
  - Memory impairment [Unknown]
  - Hypoaesthesia [Unknown]
  - Paraesthesia [Unknown]
  - Constipation [Unknown]
  - Balance disorder [Unknown]
  - Chest discomfort [Recovered/Resolved]
  - Emotional disorder [Recovered/Resolved]
  - Fatigue [Unknown]

NARRATIVE: CASE EVENT DATE: 20210804
